FAERS Safety Report 4589328-2 (Version None)
Quarter: 2005Q1

REPORT INFORMATION
  Report Type: 
  Country: None (occurrence: None)
  Receive Date: 20050216
  Receipt Date: 20050216
  Transmission Date: 20050727
  Serious: No
  Sender: FDA-Public Use
  Company Number: None

PATIENT
  Age: 49 Year
  Sex: Female
  Weight: 59.8748 kg

DRUGS (1)
  1. COLGATE WHITENING ANY DENTAL PRODUCT WITH INACTIVE TARTAR CONTROL INGR [Suspect]
     Dosage: DAILY
     Route: 004

REACTIONS (5)
  - DERMATITIS [None]
  - GINGIVAL INFECTION [None]
  - MEDICATION ERROR [None]
  - ORAL INFECTION [None]
  - PHARYNGITIS [None]
